FAERS Safety Report 10280112 (Version 3)
Quarter: 2015Q1

REPORT INFORMATION
  Report Type: Spontaneous
  Country: US (occurrence: US)
  Receive Date: 20140707
  Receipt Date: 20150205
  Transmission Date: 20150720
  Serious: Yes (Hospitalization)
  Sender: FDA-Public Use
  Company Number: US-B.I. PHARMACEUTICALS,INC./RIDGEFIELD-2014-BI-29976BP

PATIENT
  Age: 77 Year
  Sex: Female
  Weight: 89.81 kg

DRUGS (15)
  1. PRADAXA [Suspect]
     Active Substance: DABIGATRAN ETEXILATE MESYLATE
     Indication: ATRIAL FIBRILLATION
     Dosage: 300 MG
     Route: 048
     Dates: start: 2011
  2. CLONIDINE. [Concomitant]
     Active Substance: CLONIDINE
     Indication: HYPERTENSION
     Dosage: 0.2 MG
     Route: 048
  3. LEVOTHYROXINE [Concomitant]
     Active Substance: LEVOTHYROXINE
     Indication: HYPOTHYROIDISM
     Dosage: 200 MCG
     Route: 048
     Dates: start: 1994
  4. CENTRUM SILVER OTC [Concomitant]
     Indication: PROPHYLAXIS
     Route: 048
  5. LOSARTAN [Concomitant]
     Active Substance: LOSARTAN
     Indication: HYPERTENSION
     Dosage: 100 MG
     Route: 048
  6. DICYCLOMINE [Concomitant]
     Active Substance: DICYCLOMINE HYDROCHLORIDE
     Indication: DYSPEPSIA
     Dosage: 40 MG
     Route: 048
  7. NIFEDICAL [Concomitant]
     Indication: HYPERTENSION
     Dosage: 60 MG
     Route: 048
  8. UNSPECIFIED RANITIDINE [Concomitant]
     Indication: DYSPEPSIA
     Dosage: 600 MG
     Route: 048
  9. OMEGA DHA OTC [Concomitant]
     Indication: PROPHYLAXIS
     Route: 048
  10. ZETIA [Concomitant]
     Active Substance: EZETIMIBE
     Indication: BLOOD CHOLESTEROL INCREASED
     Dosage: 10 MG
     Route: 048
  11. SERTRALINE HC [Concomitant]
     Indication: DEPRESSION
     Dosage: 50 MG
     Route: 048
  12. FUROSIMIDE [Concomitant]
     Active Substance: FUROSEMIDE
     Indication: HYPERTENSION
     Dosage: 40 MG
     Route: 048
  13. TRILIPIX [Concomitant]
     Active Substance: FENOFIBRIC ACID
     Indication: BLOOD CHOLESTEROL INCREASED
     Dosage: 135 MG
     Route: 048
  14. PROBIOTIC OTC [Concomitant]
     Indication: ABDOMINAL PAIN UPPER
     Route: 048
  15. CITROCAL OTC [Concomitant]
     Indication: PROPHYLAXIS
     Route: 048

REACTIONS (6)
  - Rash [Recovered/Resolved]
  - Hypertension [Recovered/Resolved]
  - Blood cholesterol increased [Recovered/Resolved]
  - Abdominal pain upper [Recovered/Resolved]
  - Rash [Not Recovered/Not Resolved]
  - Pneumonia [Recovered/Resolved]

NARRATIVE: CASE EVENT DATE: 201212
